FAERS Safety Report 11243125 (Version 1)
Quarter: 2015Q3

REPORT INFORMATION
  Report Type: Report from Study
  Country: SK (occurrence: SK)
  Receive Date: 20150707
  Receipt Date: 20150707
  Transmission Date: 20151125
  Serious: Yes (Hospitalization)
  Sender: FDA-Public Use
  Company Number: SK-BIOGENIDEC-2015BI090554

PATIENT
  Sex: Male

DRUGS (8)
  1. DORETA [Concomitant]
     Indication: BACK PAIN
  2. PIRABENE [Concomitant]
     Indication: NERVOUS SYSTEM DISORDER
  3. TYSABRI [Suspect]
     Active Substance: NATALIZUMAB
     Indication: MULTIPLE SCLEROSIS
     Route: 042
     Dates: start: 20130423
  4. HELICID [Concomitant]
     Indication: GASTROOESOPHAGEAL REFLUX DISEASE
  5. LEXAURIN [Concomitant]
     Active Substance: BROMAZEPAM
     Indication: ANXIETY DISORDER
  6. NOLIPREL [Concomitant]
     Indication: HYPERTENSION
  7. LYRICA [Concomitant]
     Active Substance: PREGABALIN
     Indication: NERVOUS SYSTEM DISORDER
  8. CALTRATE [Concomitant]
     Active Substance: CALCIUM CARBONATE
     Indication: BACK PAIN

REACTIONS (1)
  - Back pain [Recovered/Resolved]

NARRATIVE: CASE EVENT DATE: 20150330
